FAERS Safety Report 5628428-2 (Version None)
Quarter: 2008Q1

REPORT INFORMATION
  Report Type: 
  Country: None (occurrence: None)
  Receive Date: 20080215
  Receipt Date: 20080207
  Transmission Date: 20080703
  Serious: Yes (Hospitalization)
  Sender: FDA-Public Use
  Company Number: DE-ABBOTT-08P-062-0437320-00

PATIENT
  Sex: Male
  Weight: 66 kg

DRUGS (4)
  1. HUMIRA [Suspect]
     Indication: ANKYLOSING SPONDYLITIS
     Route: 058
     Dates: start: 20060517, end: 20071001
  2. HUMIRA [Suspect]
     Route: 058
     Dates: start: 20071101
  3. DICLOFENAC SODIUM [Concomitant]
     Indication: PAIN
     Route: 048
     Dates: start: 20040101
  4. DICLOFENAC SODIUM [Concomitant]
     Indication: ANKYLOSING SPONDYLITIS

REACTIONS (1)
  - APPENDICITIS [None]
